FAERS Safety Report 7713620-3 (Version None)
Quarter: 2011Q3

REPORT INFORMATION
  Report Type: 
  Country: None (occurrence: None)
  Receive Date: 20110826
  Receipt Date: 20110822
  Transmission Date: 20111222
  Serious: Yes (Other)
  Sender: FDA-Public Use
  Company Number: US-ROCHE-798059

PATIENT
  Sex: Female

DRUGS (3)
  1. BONIVA [Suspect]
     Indication: OSTEOPOROSIS
     Route: 065
     Dates: start: 20061201, end: 20080401
  2. ALENDRONIC ACID [Suspect]
     Indication: OSTEOPOROSIS
     Route: 065
     Dates: start: 20080101, end: 20090201
  3. FOSAMAX [Suspect]
     Indication: OSTEOPOROSIS
     Route: 065
     Dates: start: 20030401, end: 20061201

REACTIONS (4)
  - LOW TURNOVER OSTEOPATHY [None]
  - ANXIETY [None]
  - FEMUR FRACTURE [None]
  - EMOTIONAL DISTRESS [None]
